FAERS Safety Report 6133512-3 (Version None)
Quarter: 2009Q1

REPORT INFORMATION
  Report Type: 
  Country: None (occurrence: None)
  Receive Date: 20090326
  Receipt Date: 20090324
  Transmission Date: 20090719
  Serious: Yes (Death, Hospitalization, Other)
  Sender: FDA-Public Use
  Company Number: PHHY2009CA10595

PATIENT
  Sex: Male

DRUGS (2)
  1. CLOZARIL [Suspect]
     Indication: DEMENTIA
     Dosage: UNK
     Dates: start: 20071012
  2. CLOZARIL [Suspect]
     Indication: SCHIZOPHRENIA

REACTIONS (4)
  - DEEP VEIN THROMBOSIS [None]
  - EATING DISORDER [None]
  - PNEUMONIA [None]
  - SEDATION [None]
